FAERS Safety Report 23871982 (Version 1)
Quarter: 2024Q2

REPORT INFORMATION
  Report Type: Report from Study
  Country: US (occurrence: US)
  Receive Date: 20240520
  Receipt Date: 20240520
  Transmission Date: 20240715
  Serious: Yes (Other)
  Sender: FDA-Public Use
  Company Number: US-ARGENX-2024-ARGX-US001611

PATIENT

DRUGS (3)
  1. VYVGART HYTRULO [Suspect]
     Active Substance: EFGARTIGIMOD ALFA\HYALURONIDASE-QVFC
     Indication: Myasthenia gravis
     Dosage: UNK
     Route: 058
     Dates: start: 20240208
  2. VYVGART HYTRULO [Suspect]
     Active Substance: EFGARTIGIMOD ALFA\HYALURONIDASE-QVFC
     Dosage: UNK
     Route: 058
     Dates: start: 20240228
  3. MESTINON [Concomitant]
     Active Substance: PYRIDOSTIGMINE BROMIDE
     Indication: Product used for unknown indication
     Dosage: DECREASED
     Route: 065

REACTIONS (13)
  - Retinal detachment [Unknown]
  - Myasthenia gravis [Unknown]
  - Injection site reaction [Unknown]
  - Body temperature abnormal [Unknown]
  - Photopsia [Unknown]
  - Migraine [Unknown]
  - Migraine [Unknown]
  - Blood pressure increased [Unknown]
  - Gait disturbance [Unknown]
  - Limb injury [Unknown]
  - Nausea [Unknown]
  - Photosensitivity reaction [Unknown]
  - Product dose omission issue [Unknown]

NARRATIVE: CASE EVENT DATE: 20240303
